FAERS Safety Report 6784495-4 (Version None)
Quarter: 2010Q2

REPORT INFORMATION
  Report Type: 
  Country: None (occurrence: None)
  Receive Date: 20100622
  Receipt Date: 20100611
  Transmission Date: 20101027
  Serious: Yes (Hospitalization)
  Sender: FDA-Public Use
  Company Number: FI-PFIZER INC-2010073252

PATIENT
  Age: 44 Year
  Sex: Female

DRUGS (3)
  1. SALAZOPYRIN [Suspect]
     Indication: RHEUMATOID ARTHRITIS
     Dosage: 500 MG TWO TIMES DAILY
     Route: 048
     Dates: start: 20100423, end: 20100501
  2. PREDNISOLONE [Concomitant]
     Dosage: 5 MG ONCE DAILY
     Route: 048
  3. PRONAXEN [Concomitant]
     Dosage: 500 MG AS NEEDED
     Route: 048

REACTIONS (4)
  - C-REACTIVE PROTEIN INCREASED [None]
  - HEADACHE [None]
  - PHOTOSENSITIVITY REACTION [None]
  - RASH VESICULAR [None]
